FAERS Safety Report 10917617 (Version 1)
Quarter: 2015Q1

REPORT INFORMATION
  Report Type: Spontaneous
  Country: SE (occurrence: None)
  Receive Date: 20150311
  Receipt Date: 20150311
  Transmission Date: 20150721
  Serious: Yes (Other)
  Sender: FDA-Public Use
  Company Number: 2015COV00051

PATIENT
  Sex: Male

DRUGS (3)
  1. EUTHYROX [Suspect]
     Active Substance: LEVOTHYROXINE SODIUM
     Indication: FOETAL EXPOSURE TIMING UNSPECIFIED
     Route: 064
     Dates: start: 2014
  2. ASPIRIN CARDIO (ACETYLSALICYLIC ACID) [Suspect]
     Active Substance: ASPIRIN
     Indication: FOETAL EXPOSURE TIMING UNSPECIFIED
     Route: 064
     Dates: end: 201409
  3. PLAQUENIL [Suspect]
     Active Substance: HYDROXYCHLOROQUINE SULFATE
     Indication: FOETAL EXPOSURE TIMING UNSPECIFIED
     Dates: start: 20140716

REACTIONS (9)
  - Premature baby [None]
  - Neonatal respiratory distress syndrome [None]
  - Acute respiratory distress syndrome [None]
  - Hypoglycaemia neonatal [None]
  - Foetal exposure during pregnancy [None]
  - Foetal growth restriction [None]
  - Microcephaly [None]
  - Placenta praevia [None]
  - Placental infarction [None]

NARRATIVE: CASE EVENT DATE: 20140228
